FAERS Safety Report 13601085 (Version 1)
Quarter: 2017Q2

REPORT INFORMATION
  Report Type: Spontaneous
  Country: US (occurrence: US)
  Receive Date: 20170601
  Receipt Date: 20170601
  Transmission Date: 20170830
  Serious: Yes (Life-Threatening, Hospitalization)
  Sender: FDA-Public Use
  Company Number: None

PATIENT
  Age: 23 Year
  Sex: Female
  Weight: 57.5 kg

DRUGS (1)
  1. RECOMBINATE [Suspect]
     Active Substance: ANTIHEMOPHILIC FACTOR, HUMAN RECOMBINANT
     Indication: HAEMORRHAGE
     Route: 040
     Dates: start: 20170103, end: 20170526

REACTIONS (5)
  - Hypertension [None]
  - Dyspnoea [None]
  - Tachycardia [None]
  - Flushing [None]
  - Chills [None]

NARRATIVE: CASE EVENT DATE: 20170526
